FAERS Safety Report 19119595 (Version 4)
Quarter: 2021Q2

REPORT INFORMATION
  Report Type: Spontaneous
  Country: JP (occurrence: JP)
  Receive Date: 20210412
  Receipt Date: 20210531
  Transmission Date: 20210717
  Serious: Yes (Hospitalization, Other)
  Sender: FDA-Public Use
  Company Number: JP-AMGEN-JPNSP2021053601

PATIENT
  Age: 51 Year
  Sex: Female

DRUGS (3)
  1. DUVROQ [Concomitant]
     Active Substance: DAPRODUSTAT
     Dosage: 4 MILLIGRAM
     Route: 048
  2. NESP [Suspect]
     Active Substance: DARBEPOETIN ALFA
     Indication: NEPHROGENIC ANAEMIA
     Dosage: UNK
     Route: 010
  3. DUVROQ [Concomitant]
     Active Substance: DAPRODUSTAT
     Indication: NEPHROGENIC ANAEMIA
     Dosage: UNK
     Route: 048
     Dates: start: 20210401

REACTIONS (1)
  - Haemolytic anaemia [Not Recovered/Not Resolved]
